FAERS Safety Report 6399488-9 (Version None)
Quarter: 2009Q4

REPORT INFORMATION
  Report Type: 
  Country: None (occurrence: None)
  Receive Date: 20091014
  Receipt Date: 20091006
  Transmission Date: 20100525
  Serious: No
  Sender: FDA-Public Use
  Company Number: US-JNJFOC-20091002682

PATIENT
  Sex: Male
  Weight: 72.12 kg

DRUGS (4)
  1. DURAGESIC-100 [Suspect]
     Indication: BACK PAIN
     Route: 062
  2. DURAGESIC-100 [Suspect]
     Dosage: NDC NO: SC458-0036-05
     Route: 062
  3. ZOLOFT [Concomitant]
     Indication: DEPRESSION
     Route: 048
  4. OXYCODONE [Concomitant]
     Indication: BREAKTHROUGH PAIN
     Route: 048

REACTIONS (7)
  - DRUG INEFFECTIVE [None]
  - DRUG PRESCRIBING ERROR [None]
  - INCORRECT DRUG ADMINISTRATION DURATION [None]
  - OEDEMA PERIPHERAL [None]
  - PRODUCT QUALITY ISSUE [None]
  - WOUND [None]
  - WRONG TECHNIQUE IN DRUG USAGE PROCESS [None]
